FAERS Safety Report 19876023 (Version 7)
Quarter: 2025Q2

REPORT INFORMATION
  Report Type: Spontaneous
  Country: JP (occurrence: JP)
  Receive Date: 20210924
  Receipt Date: 20250619
  Transmission Date: 20250716
  Serious: Yes (Other)
  Sender: SANOFI AVENTIS
  Company Number: JP-SAKK-2021SA311151AA

PATIENT
  Age: 55 Year
  Sex: Female

DRUGS (5)
  1. DUPIXENT [Suspect]
     Active Substance: DUPILUMAB
     Indication: Chronic rhinosinusitis with nasal polyps
     Route: 058
     Dates: start: 20210916, end: 20210916
  2. FLUTIFORM [Suspect]
     Active Substance: FLUTIFORM
     Indication: Asthma
     Route: 065
  3. MONTELUKAST SODIUM [Concomitant]
     Active Substance: MONTELUKAST SODIUM
     Indication: Chronic eosinophilic rhinosinusitis
     Route: 048
  4. MOMETASONE FUROATE MONOHYDRATE [Concomitant]
     Active Substance: MOMETASONE FUROATE MONOHYDRATE
     Indication: Product used for unknown indication
     Route: 045
  5. FLUTICASONE PROPIONATE\FORMOTEROL FUMARATE [Concomitant]
     Active Substance: FLUTICASONE PROPIONATE\FORMOTEROL FUMARATE
     Indication: Product used for unknown indication
     Route: 055

REACTIONS (8)
  - Eosinophilic granulomatosis with polyangiitis [Recovering/Resolving]
  - Muscular weakness [Recovering/Resolving]
  - Hypoaesthesia [Recovering/Resolving]
  - Gait disturbance [Recovering/Resolving]
  - Rash [Recovering/Resolving]
  - Cough [Recovering/Resolving]
  - Mononeuropathy multiplex [Recovering/Resolving]
  - Pain [Recovering/Resolving]

NARRATIVE: CASE EVENT DATE: 20210917
